FAERS Safety Report 9524164 (Version 1)
Quarter: 2013Q1

REPORT INFORMATION
  Report Type: Spontaneous
  Country: US (occurrence: None)
  Receive Date: 20130313
  Receipt Date: 20130313
  Transmission Date: 20140127
  Serious: No
  Sender: FDA-Public Use
  Company Number: 1000039430

PATIENT
  Sex: Male

DRUGS (1)
  1. SAVELLA (MILNACIPRAN HYDROCHLORIDE) (50 MILLIGRAM, TABLETS) [Suspect]
     Dosage: 100MG (50 MG, 2 IN 1 D), ORAL
     Route: 048
     Dates: start: 201208, end: 201209

REACTIONS (1)
  - Hypoglycaemia [None]
